FAERS Safety Report 21858434 (Version 1)
Quarter: 2023Q1

REPORT INFORMATION
  Report Type: Report from Study
  Country: PR (occurrence: PR)
  Receive Date: 20230113
  Receipt Date: 20230113
  Transmission Date: 20230417
  Serious: No
  Sender: FDA-Public Use
  Company Number: PR-ABBVIE-4237783

PATIENT
  Sex: Female
  Weight: 68.038 kg

DRUGS (18)
  1. HUMIRA [Suspect]
     Active Substance: ADALIMUMAB
     Indication: Ankylosing spondylitis
     Dosage: STRENGTH: 40  MG
     Route: 058
     Dates: start: 2022, end: 20220816
  2. HUMIRA [Suspect]
     Active Substance: ADALIMUMAB
     Indication: Rheumatoid arthritis
     Dosage: STRENGTH: 40 MG
     Route: 058
     Dates: start: 2022, end: 202209
  3. HUMIRA [Suspect]
     Active Substance: ADALIMUMAB
     Route: 058
     Dates: start: 2019, end: 202203
  4. FLEXERIL [Concomitant]
     Active Substance: CYCLOBENZAPRINE HYDROCHLORIDE
     Indication: Antiinflammatory therapy
     Dosage: STRENGTH: 10 MG
     Route: 048
     Dates: start: 2005, end: 202209
  5. CELEBREX [Concomitant]
     Active Substance: CELECOXIB
     Indication: Product used for unknown indication
     Dosage: STRENGTH: 20 MG
     Route: 048
     Dates: start: 2021
  6. SYNTHROID [Concomitant]
     Active Substance: LEVOTHYROXINE SODIUM
     Indication: Thyroid disorder
     Dosage: STRENGTH: 75 MG
     Route: 048
     Dates: start: 2001
  7. SYNTHROID [Concomitant]
     Active Substance: LEVOTHYROXINE SODIUM
     Indication: Thyroid disorder
     Dosage: STRENGTH: 88 MG
     Route: 048
     Dates: start: 2001
  8. LIPITOR [Concomitant]
     Active Substance: ATORVASTATIN CALCIUM
     Indication: Blood cholesterol abnormal
     Route: 048
     Dates: end: 202111
  9. NEURONTIN [Concomitant]
     Active Substance: GABAPENTIN
     Indication: Fibromyalgia
     Dosage: STRENGTH: 300 MG
     Route: 048
     Dates: start: 2017
  10. PFIZER-BIONTECH COVID-19 VACCINE [Concomitant]
     Active Substance: TOZINAMERAN
     Indication: COVID-19 immunisation
     Dosage: 1ST DOSE, ONE IN ONCE
     Route: 030
     Dates: start: 20210304, end: 20210304
  11. PFIZER-BIONTECH COVID-19 VACCINE [Concomitant]
     Active Substance: TOZINAMERAN
     Indication: COVID-19 immunisation
     Dosage: 2ND DOSE, ONE IN ONCE
     Route: 030
     Dates: start: 20210324, end: 20210324
  12. PFIZER-BIONTECH COVID-19 VACCINE [Concomitant]
     Active Substance: TOZINAMERAN
     Indication: COVID-19 immunisation
     Dosage: 3RD DOSE, ONE IN ONCE
     Route: 030
     Dates: start: 20210917, end: 20210917
  13. FOLIC ACID [Concomitant]
     Active Substance: FOLIC ACID
     Indication: Rheumatoid arthritis
     Dosage: STRENGTH: 1 MG
     Route: 048
     Dates: start: 2021
  14. CRESTOR [Concomitant]
     Active Substance: ROSUVASTATIN CALCIUM
     Indication: Blood cholesterol abnormal
     Dosage: STRENGTH: 20 MG
     Route: 048
     Dates: start: 202211
  15. METHOTREXATE [Concomitant]
     Active Substance: METHOTREXATE
     Indication: Rheumatoid arthritis
     Dosage: STRENGTH: 10 MG
     Route: 048
     Dates: start: 2021
  16. CYMBALTA [Concomitant]
     Active Substance: DULOXETINE HYDROCHLORIDE
     Indication: Fibromyalgia
     Dosage: STRENGTH: 30 MG
     Route: 048
     Dates: start: 2017
  17. PEPCID [Concomitant]
     Active Substance: FAMOTIDINE
     Indication: Gastric disorder
     Route: 048
     Dates: start: 2005
  18. RECLAST [Concomitant]
     Active Substance: ZOLEDRONIC ACID
     Indication: Osteoporosis
     Dates: start: 202202

REACTIONS (3)
  - Lymphadenopathy [Recovering/Resolving]
  - Influenza [Recovering/Resolving]
  - Blood cholesterol increased [Recovering/Resolving]

NARRATIVE: CASE EVENT DATE: 20221101
